FAERS Safety Report 13561553 (Version 1)
Quarter: 2017Q2

REPORT INFORMATION
  Report Type: Spontaneous
  Country: IT (occurrence: IT)
  Receive Date: 20170518
  Receipt Date: 20170518
  Transmission Date: 20170830
  Serious: Yes (Hospitalization)
  Sender: FDA-Public Use
  Company Number: IT-ROCHE-1934381

PATIENT
  Age: 39 Year
  Sex: Male

DRUGS (1)
  1. XOLAIR [Suspect]
     Active Substance: OMALIZUMAB
     Indication: ASTHMA
     Route: 058

REACTIONS (4)
  - Abdominal pain upper [Recovering/Resolving]
  - Pallor [Recovering/Resolving]
  - Pharyngeal stenosis [Recovering/Resolving]
  - Sinus tachycardia [Unknown]

NARRATIVE: CASE EVENT DATE: 20170420
